FAERS Safety Report 7512374 (Version 3)
Quarter: 2013Q1

REPORT INFORMATION
  Report Type: Spontaneous
  Country: MX (occurrence: MX)
  Receive Date: 20100730
  Receipt Date: 20130326
  Transmission Date: 20140127
  Serious: Yes (Hospitalization)
  Sender: FDA-Public Use
  Company Number: PHHY2010MX47377

PATIENT
  Age: 75 Year
  Sex: Female

DRUGS (7)
  1. ACLASTA [Suspect]
     Indication: OSTEOPOROSIS
     Dosage: 5 MG PER 100 ML
     Route: 042
     Dates: start: 200803
  2. PIOGLITAZONE [Concomitant]
     Dosage: 1 DF, UNK
     Route: 048
     Dates: start: 200907
  3. METFORMIN [Concomitant]
     Dosage: 1 DF, UNK
     Route: 048
     Dates: start: 200907
  4. INSULIN [Concomitant]
     Dosage: 10 UNITS PER DAY
     Dates: start: 200907
  5. LOSARTAN [Concomitant]
     Dosage: 2 DF, UNK
     Route: 048
     Dates: start: 200907
  6. AMLODIPINE [Concomitant]
     Dosage: 2 DF, UNK
     Route: 048
     Dates: start: 200907
  7. METOPROLOL [Concomitant]
     Dosage: 2 DF, UNK
     Route: 048

REACTIONS (3)
  - Fall [Recovering/Resolving]
  - Lumbar vertebral fracture [Recovering/Resolving]
  - Thoracic vertebral fracture [Recovering/Resolving]
